FAERS Safety Report 13122411 (Version 18)
Quarter: 2019Q2

REPORT INFORMATION
  Report Type: Report from Study
  Country: US (occurrence: US)
  Receive Date: 20170117
  Receipt Date: 20190403
  Transmission Date: 20190711
  Serious: Yes (Other)
  Sender: FDA-Public Use
  Company Number: US-INCYTE CORPORATION-2016IN007870

PATIENT

DRUGS (54)
  1. HYDROXYUREA. [Concomitant]
     Active Substance: HYDROXYUREA
     Indication: POLYCYTHAEMIA VERA
     Dosage: 500 MG, QD
     Route: 065
     Dates: start: 20150508, end: 20150724
  2. LOVENOX [Concomitant]
     Active Substance: ENOXAPARIN SODIUM
     Indication: THROMBOSIS PROPHYLAXIS
     Dosage: 40 MG, QD
     Route: 065
     Dates: start: 20170322, end: 20170411
  3. OMEPRAZOLE. [Concomitant]
     Active Substance: OMEPRAZOLE
     Indication: GASTROOESOPHAGEAL REFLUX DISEASE
     Dosage: 20 MG QD
     Route: 065
     Dates: start: 20141212
  4. SUBLIMAZE [Concomitant]
     Active Substance: FENTANYL CITRATE
     Indication: VAGINAL OPERATION
     Dosage: 25-50 ?G, PRN
     Route: 065
     Dates: start: 20170508, end: 20170508
  5. JAKAFI [Suspect]
     Active Substance: RUXOLITINIB
     Dosage: 5 MG, BID
     Route: 065
     Dates: start: 20160721, end: 20170209
  6. EFFEXOR XR [Concomitant]
     Active Substance: VENLAFAXINE HYDROCHLORIDE
     Indication: DEPRESSION
     Dosage: 37.5 MG, QD
     Route: 065
     Dates: start: 20150430, end: 20150514
  7. HYDREA [Concomitant]
     Active Substance: HYDROXYUREA
     Indication: POLYCYTHAEMIA VERA
     Dosage: 1000 MG, QD
     Route: 065
     Dates: start: 20150818, end: 20150818
  8. HYDREA [Concomitant]
     Active Substance: HYDROXYUREA
     Dosage: 500 MG, QD
     Route: 065
     Dates: start: 20150819, end: 20150823
  9. HYDROXYUREA. [Concomitant]
     Active Substance: HYDROXYUREA
     Dosage: 500 MG, BID
     Route: 065
     Dates: start: 20170316, end: 20170329
  10. ONDANSETRON [Concomitant]
     Active Substance: ONDANSETRON
     Dosage: 4 MG PRN
     Route: 065
     Dates: start: 20170525
  11. REMERON [Concomitant]
     Active Substance: MIRTAZAPINE
     Dosage: 15 MG, QHS
     Route: 065
     Dates: start: 20151009, end: 20160128
  12. PROCHLORPERAZINE. [Concomitant]
     Active Substance: PROCHLORPERAZINE
     Indication: ANXIETY
  13. JAKAFI [Suspect]
     Active Substance: RUXOLITINIB
     Dosage: 5 MG, BID
     Route: 065
     Dates: start: 20160519, end: 20160615
  14. JAKAFI [Suspect]
     Active Substance: RUXOLITINIB
     Dosage: 5 MG, QD
     Route: 048
     Dates: start: 20170210, end: 20170329
  15. EFFEXOR XR [Concomitant]
     Active Substance: VENLAFAXINE HYDROCHLORIDE
     Dosage: 150 MG, QD
     Route: 065
     Dates: start: 20150620, end: 20150806
  16. EFFEXOR XR [Concomitant]
     Active Substance: VENLAFAXINE HYDROCHLORIDE
     Dosage: 225 MG, QD
     Route: 065
     Dates: start: 20150807, end: 20160515
  17. ACYCLOVIR                          /00587301/ [Concomitant]
     Active Substance: ACYCLOVIR
     Indication: ORAL HERPES
     Dosage: 20 ML, BID
     Route: 065
     Dates: start: 20161019
  18. JAKAFI [Suspect]
     Active Substance: RUXOLITINIB
     Dosage: 10 MG, BID
     Route: 065
     Dates: start: 20151204, end: 20160518
  19. EFFEXOR XR [Concomitant]
     Active Substance: VENLAFAXINE HYDROCHLORIDE
     Dosage: 75 MG, QD
     Route: 065
     Dates: start: 20150515, end: 20150611
  20. EFFEXOR XR [Concomitant]
     Active Substance: VENLAFAXINE HYDROCHLORIDE
     Dosage: 112.5 MG, QD
     Route: 065
     Dates: start: 20150612, end: 20150619
  21. KLONOPIN [Concomitant]
     Active Substance: CLONAZEPAM
     Indication: PANIC DISORDER
     Dosage: 0.5 MG, PRN
     Route: 065
     Dates: start: 20150430, end: 20151001
  22. REMERON [Concomitant]
     Active Substance: MIRTAZAPINE
     Indication: DEPRESSION
     Dosage: 7.5 MG, QHS
     Route: 065
     Dates: start: 20151001, end: 20151008
  23. DESYREL [Concomitant]
     Active Substance: TRAZODONE HYDROCHLORIDE
     Indication: DEPRESSION
     Dosage: 50 MG, QD
     Route: 065
     Dates: start: 20161020
  24. LOVENOX [Concomitant]
     Active Substance: ENOXAPARIN SODIUM
     Dosage: 25-50 MCG, QD
     Route: 065
     Dates: start: 20170508, end: 20170508
  25. SIMETHICONE (DIMETHICONE) [Concomitant]
     Active Substance: DIMETHICONE
     Indication: FLATULENCE
     Dosage: 80 MG PRN
     Route: 065
     Dates: start: 20170508, end: 20170509
  26. MULTIVITAMINS PLUS IRON [Concomitant]
     Active Substance: IRON\VITAMINS
     Indication: IRON DEFICIENCY
     Dosage: 1 TABLET, QD
     Route: 065
     Dates: start: 20180306, end: 20180307
  27. JAKAFI [Suspect]
     Active Substance: RUXOLITINIB
     Indication: POLYCYTHAEMIA VERA
     Dosage: 10 MG, BID
     Route: 065
     Dates: start: 20150831, end: 20150902
  28. HYDROXYUREA. [Concomitant]
     Active Substance: HYDROXYUREA
     Dosage: 500 MG, QD
     Route: 065
     Dates: start: 20170302, end: 20170315
  29. CITRANATAL ASSURE [Concomitant]
     Active Substance: .ALPHA.-TOCOPHEROL\ASCORBIC ACID\CALCIUM CITRATE\CHOLECALCIFEROL\COPPER\DOCONEXENT\DOCUSATE SODIUM\FOLIC ACID\ICOSAPENT\IODINE\IRON\NIACINAMIDE\PYRIDOXINE HYDROCHLORIDE\RIBOFLAVIN\THIAMINE\ZINC
     Indication: VITAMIN SUPPLEMENTATION
     Dosage: 300 MG, QD
     Route: 065
     Dates: start: 20151231, end: 20160225
  30. WELLBUTRIN [Concomitant]
     Active Substance: BUPROPION HYDROCHLORIDE
     Indication: DEPRESSION
     Dosage: 150 MG, QD
     Route: 065
     Dates: start: 20160128
  31. BUPIVACAINE. [Concomitant]
     Active Substance: BUPIVACAINE
     Indication: VAGINAL OPERATION
     Dosage: 5.4 ML, PRN
     Route: 065
     Dates: start: 20170508, end: 20170508
  32. PROCHLORPERAZINE. [Concomitant]
     Active Substance: PROCHLORPERAZINE
     Indication: NAUSEA
     Dosage: 10 MG, PRN
     Route: 065
     Dates: start: 20170829
  33. JAKAFI [Suspect]
     Active Substance: RUXOLITINIB
     Dosage: 20 MG, BID
     Route: 048
     Dates: start: 20170330
  34. HYDROXYUREA. [Concomitant]
     Active Substance: HYDROXYUREA
     Dosage: 2000 MG, QD
     Route: 065
     Dates: start: 20150824, end: 20150830
  35. FLEXERIL [Concomitant]
     Active Substance: CYCLOBENZAPRINE HYDROCHLORIDE
     Indication: MYALGIA
     Dosage: 5 MG, TID
     Route: 065
     Dates: start: 20141115
  36. LIDOCAINE VISCOUS [Concomitant]
     Active Substance: LIDOCAINE HYDROCHLORIDE
     Indication: OROPHARYNGEAL PAIN
     Dosage: 30 ML, PRN
     Route: 065
     Dates: start: 20160225
  37. CLONAZEPAM. [Concomitant]
     Active Substance: CLONAZEPAM
     Indication: ANXIETY
     Dosage: 1 MG, BID
     Route: 065
     Dates: start: 20160113, end: 20160128
  38. IBUPROFEN. [Concomitant]
     Active Substance: IBUPROFEN
     Indication: PAIN
     Dosage: 800 MG, PRN
     Route: 065
     Dates: start: 20170508, end: 20170509
  39. NORCO [Concomitant]
     Active Substance: ACETAMINOPHEN\HYDROCODONE BITARTRATE
     Indication: HERPES ZOSTER
     Dosage: 5-325 MG ONCE
     Route: 065
     Dates: start: 20190131, end: 20190131
  40. MOTRIN [Concomitant]
     Active Substance: IBUPROFEN
     Indication: PAIN IN EXTREMITY
     Dosage: 600 MG, ONCE
     Route: 065
     Dates: start: 20181127
  41. VALACYCLOVIR [Concomitant]
     Active Substance: VALACYCLOVIR HYDROCHLORIDE
     Indication: HERPES ZOSTER
     Dosage: 1000 MG, TID
     Route: 065
     Dates: start: 20190131
  42. JAKAFI [Suspect]
     Active Substance: RUXOLITINIB
     Dosage: 5 MG, QD
     Route: 065
     Dates: start: 20160616, end: 20160720
  43. HYDROXYUREA. [Concomitant]
     Active Substance: HYDROXYUREA
     Dosage: 1000 MG QD
     Route: 065
     Dates: start: 20150725, end: 20150807
  44. ONDANSETRON [Concomitant]
     Active Substance: ONDANSETRON
     Indication: NAUSEA
     Dosage: 4 MG, BID
     Route: 065
     Dates: start: 20141027, end: 20150605
  45. ZOLOFT [Concomitant]
     Active Substance: SERTRALINE HYDROCHLORIDE
     Indication: DEPRESSION
     Dosage: 100 MG, QD
     Route: 065
     Dates: start: 20140603, end: 20150502
  46. ZOLOFT [Concomitant]
     Active Substance: SERTRALINE HYDROCHLORIDE
     Indication: ANXIETY
  47. LACTULOSE. [Concomitant]
     Active Substance: LACTULOSE
     Indication: CONSTIPATION
     Dosage: 15 ML, QD
     Route: 065
     Dates: start: 20161018
  48. LOVENOX [Concomitant]
     Active Substance: ENOXAPARIN SODIUM
     Indication: VAGINAL OPERATION
     Dosage: 40 MG, QD
     Route: 065
     Dates: start: 20170508, end: 20170508
  49. CLONAZEPAM. [Concomitant]
     Active Substance: CLONAZEPAM
     Indication: PANIC DISORDER
     Dosage: 1 MG, QD
     Route: 065
     Dates: start: 20160129
  50. PROTONIX                           /00661201/ [Concomitant]
     Active Substance: OMEPRAZOLE
     Indication: GASTROOESOPHAGEAL REFLUX DISEASE
     Dosage: 20  MG BID
     Route: 065
     Dates: start: 20170508, end: 20170509
  51. MACROBID [Concomitant]
     Active Substance: NITROFURANTOIN\NITROFURANTOIN MONOHYDRATE
     Indication: URINARY TRACT INFECTION
     Dosage: 100 MG, BID
     Route: 065
     Dates: start: 20170227, end: 20180306
  52. ASPIRIN                            /00002701/ [Concomitant]
     Active Substance: ASPIRIN
     Indication: POLYCYTHAEMIA VERA
     Dosage: 81 MG, BID
     Route: 065
     Dates: start: 20140103, end: 20150902
  53. KLONOPIN [Concomitant]
     Active Substance: CLONAZEPAM
     Dosage: 1 MG, BID
     Route: 065
     Dates: start: 20160113, end: 20160128
  54. ACETAMINOPHEN W/CAFFEINE [Concomitant]
     Active Substance: ACETAMINOPHEN\CAFFEINE
     Indication: HEADACHE
     Dosage: 500-65 MG, PRN
     Route: 065
     Dates: start: 20170518

REACTIONS (47)
  - Diarrhoea haemorrhagic [Recovered/Resolved]
  - Nasal congestion [Recovered/Resolved]
  - Rash generalised [Recovered/Resolved]
  - Fall [Recovered/Resolved]
  - Vaginal haemorrhage [Recovered/Resolved]
  - Fatigue [Recovered/Resolved]
  - Fatigue [Recovered/Resolved]
  - Diarrhoea [Not Recovered/Not Resolved]
  - Constipation [Not Recovered/Not Resolved]
  - Oral herpes [Recovered/Resolved]
  - Laryngeal inflammation [Recovered/Resolved]
  - Vulva cyst [Recovered/Resolved]
  - Tinnitus [Unknown]
  - Fatigue [Recovered/Resolved]
  - Nausea [Recovered/Resolved]
  - Night sweats [Recovered/Resolved]
  - Sinusitis [Recovered/Resolved]
  - Weight decreased [Not Recovered/Not Resolved]
  - Decreased appetite [Not Recovered/Not Resolved]
  - Hypotension [Recovered/Resolved]
  - Platelet count increased [Recovered/Resolved]
  - Urinary tract infection [Recovered/Resolved]
  - Helicobacter infection [Recovered/Resolved]
  - Insomnia [Recovered/Resolved]
  - Glossitis [Recovered/Resolved]
  - Haemorrhoids [Recovered/Resolved]
  - Vaginal haemorrhage [Recovered/Resolved]
  - Tinnitus [Recovered/Resolved]
  - Cystitis noninfective [Recovered/Resolved]
  - Fatigue [Unknown]
  - Nausea [Recovering/Resolving]
  - Pruritus [Recovered/Resolved]
  - Arthralgia [Recovering/Resolving]
  - Syncope [Recovered/Resolved]
  - Decreased appetite [Recovered/Resolved]
  - Vulvovaginal inflammation [Not Recovered/Not Resolved]
  - Urinary tract infection [Recovered/Resolved]
  - Nausea [Recovered/Resolved]
  - Abdominal pain [Recovered/Resolved]
  - Platelet count decreased [Recovered/Resolved]
  - Platelet count decreased [Recovered/Resolved]
  - Stomatitis [Recovered/Resolved]
  - Platelet count decreased [Recovered/Resolved]
  - Suicidal ideation [Recovered/Resolved]
  - Visual impairment [Not Recovered/Not Resolved]
  - Platelet count increased [Recovered/Resolved]
  - Anaemia [Recovered/Resolved]

NARRATIVE: CASE EVENT DATE: 20150902
